FAERS Safety Report 7058673-3 (Version None)
Quarter: 2010Q4

REPORT INFORMATION
  Report Type: 
  Country: None (occurrence: None)
  Receive Date: 20101022
  Receipt Date: 20101013
  Transmission Date: 20110411
  Serious: Yes (Hospitalization, Other)
  Sender: FDA-Public Use
  Company Number: US-ABBOTT-10P-163-0678263-00

PATIENT
  Sex: Male
  Weight: 78.088 kg

DRUGS (2)
  1. NIASPAN [Suspect]
     Indication: BLOOD CHOLESTEROL INCREASED
     Dates: start: 20080601
  2. NIASPAN [Suspect]

REACTIONS (10)
  - ABDOMINAL PAIN UPPER [None]
  - ARRHYTHMIA [None]
  - DIZZINESS [None]
  - DYSPEPSIA [None]
  - ERYTHEMA [None]
  - FLUSHING [None]
  - HEART RATE INCREASED [None]
  - HYPERHIDROSIS [None]
  - MYOCARDIAL INFARCTION [None]
  - PRURITUS [None]
